FAERS Safety Report 10100632 (Version 1)
Quarter: 2014Q2

REPORT INFORMATION
  Report Type: Spontaneous
  Country: SI (occurrence: SI)
  Receive Date: 20140423
  Receipt Date: 20140423
  Transmission Date: 20141212
  Serious: Yes (Hospitalization)
  Sender: FDA-Public Use
  Company Number: PHHY2014SI048691

PATIENT
  Sex: 0

DRUGS (1)
  1. PARACETAMOL [Suspect]

REACTIONS (3)
  - Hepatic failure [Unknown]
  - Renal failure [Unknown]
  - Overdose [Unknown]
